FAERS Safety Report 5268602-0 (Version None)
Quarter: 2007Q1

REPORT INFORMATION
  Report Type: 
  Country: None (occurrence: None)
  Receive Date: 20070315
  Receipt Date: 20070315
  Transmission Date: 20070707
  Serious: No
  Sender: FDA-Public Use
  Company Number: None

PATIENT
  Sex: Female
  Weight: 61.2356 kg

DRUGS (1)
  1. AMBIEN [Suspect]
     Indication: INSOMNIA
     Dosage: 1 PILL AT NIGHT 2 TIMES A WK
     Dates: start: 20040101, end: 20060101

REACTIONS (2)
  - ABNORMAL SLEEP-RELATED EVENT [None]
  - AMNESIA [None]
